FAERS Safety Report 6830164-1 (Version None)
Quarter: 2010Q3

REPORT INFORMATION
  Report Type: 
  Country: None (occurrence: None)
  Receive Date: 20100711
  Receipt Date: 20100528
  Transmission Date: 20110219
  Serious: No
  Sender: FDA-Public Use
  Company Number: US-ALLERGAN-1007079US

PATIENT
  Age: 45 Year
  Sex: Female

DRUGS (5)
  1. LATISSE [Suspect]
     Indication: HYPERTRICHOSIS
     Dosage: 1 GTT, QHS
     Route: 061
  2. PROZAC                             /00724401/ [Concomitant]
  3. ALLEGRA [Concomitant]
     Dosage: UNK
  4. MOTRIN [Concomitant]
     Dosage: UNK
  5. MULTI-VITAMIN [Concomitant]

REACTIONS (1)
  - MADAROSIS [None]
